FAERS Safety Report 18238158 (Version 1)
Quarter: 2020Q3

REPORT INFORMATION
  Report Type: Spontaneous
  Country: US (occurrence: US)
  Receive Date: 20200907
  Receipt Date: 20200907
  Transmission Date: 20201103
  Serious: No
  Sender: FDA-Public Use
  Company Number: US-PFIZER INC-2020343127

PATIENT
  Sex: Female

DRUGS (2)
  1. ADVIL LIQUI?GELS [Suspect]
     Active Substance: IBUPROFEN
     Indication: PAIN
     Dosage: 2 DF, (2 EVERY 5 HOURS)
  2. ADVIL LIQUI?GELS [Suspect]
     Active Substance: IBUPROFEN
     Dosage: 3 DF, (3 EVERY 5 HOURS)

REACTIONS (2)
  - Intentional overdose [Unknown]
  - Drug ineffective [Unknown]
